FAERS Safety Report 5006373-3 (Version None)
Quarter: 2006Q2

REPORT INFORMATION
  Report Type: 
  Country: None (occurrence: None)
  Receive Date: 20060519
  Receipt Date: 20060508
  Transmission Date: 20061013
  Serious: Yes (Hospitalization, Other)
  Sender: FDA-Public Use
  Company Number: PHEH2006US06071

PATIENT
  Age: 23 Year
  Sex: Male

DRUGS (7)
  1. CLOZARIL [Suspect]
     Indication: SCHIZOPHRENIA
     Dosage: 400 MG, UNK
     Dates: end: 20060501
  2. CLOZARIL [Suspect]
     Dosage: 2000 MG, ONCE/SINGLE
     Route: 048
     Dates: start: 20060504, end: 20060504
  3. CLOZARIL [Suspect]
     Dates: start: 20060507
  4. COGENTIN [Suspect]
     Dates: end: 20060501
  5. COGENTIN [Suspect]
     Dosage: UNK, UNK
     Dates: start: 20060504, end: 20060504
  6. PROLIXIN [Suspect]
     Dosage: UNK, UNK
     Dates: end: 20060501
  7. PROLIXIN [Suspect]
     Dosage: UNK, UNK
     Dates: start: 20060504, end: 20060504

REACTIONS (10)
  - ANTICHOLINERGIC SYNDROME [None]
  - CONFUSIONAL STATE [None]
  - DELIRIUM [None]
  - DELUSION [None]
  - DISEASE RECURRENCE [None]
  - HYPERTENSION [None]
  - INTENTIONAL OVERDOSE [None]
  - PSYCHOTIC DISORDER [None]
  - TACHYCARDIA [None]
  - TREATMENT NONCOMPLIANCE [None]
